FAERS Safety Report 8592896-7 (Version None)
Quarter: 2012Q3

REPORT INFORMATION
  Report Type: 
  Country: None (occurrence: None)
  Receive Date: 20120814
  Receipt Date: 20120730
  Transmission Date: 20120928
  Serious: Yes (Death, Other)
  Sender: FDA-Public Use
  Company Number: DK-ROCHE-1096837

PATIENT

DRUGS (9)
  1. ETOPOSIDE [Suspect]
     Indication: MANTLE CELL LYMPHOMA
  2. MELPHALAN HYDROCHLORIDE [Suspect]
     Indication: MANTLE CELL LYMPHOMA
  3. CYCLOPHOSPHAMIDE [Suspect]
     Indication: MANTLE CELL LYMPHOMA
  4. VINCRISTINE [Suspect]
     Indication: MANTLE CELL LYMPHOMA
  5. PREDNISOLONE [Suspect]
     Indication: MANTLE CELL LYMPHOMA
  6. CYTARABINE [Suspect]
     Indication: MANTLE CELL LYMPHOMA
  7. CARMUSTINE [Suspect]
     Indication: MANTLE CELL LYMPHOMA
  8. DOXORUBICIN HCL [Suspect]
     Indication: MANTLE CELL LYMPHOMA
  9. MABTHERA [Suspect]
     Indication: MANTLE CELL LYMPHOMA

REACTIONS (4)
  - INFECTION [None]
  - CARDIAC FAILURE [None]
  - TRANSPLANT FAILURE [None]
  - MYELODYSPLASTIC SYNDROME [None]
